FAERS Safety Report 23987414 (Version 1)
Quarter: 2024Q2

REPORT INFORMATION
  Report Type: Spontaneous
  Country: US (occurrence: US)
  Receive Date: 20240618
  Receipt Date: 20240618
  Transmission Date: 20240716
  Serious: Yes (Other)
  Sender: FDA-Public Use
  Company Number: US-INCYTE CORPORATION-2024IN006317

PATIENT

DRUGS (1)
  1. OPZELURA [Suspect]
     Active Substance: RUXOLITINIB PHOSPHATE
     Dosage: 1.5 PERCENT, BID APPLY A THIN LAYER TO AFFECTED AREA(S) AS DIRECTED (CAN MIX WITH MOISTURIZER)
     Route: 061
     Dates: start: 20240401

REACTIONS (2)
  - Neuropathy peripheral [Unknown]
  - Dry skin [Unknown]

NARRATIVE: CASE EVENT DATE: 20240612
